FAERS Safety Report 10068602 (Version 1)
Quarter: 2014Q2

REPORT INFORMATION
  Report Type: Spontaneous
  Country: US (occurrence: US)
  Receive Date: 20140409
  Receipt Date: 20140409
  Transmission Date: 20141212
  Serious: Yes (Hospitalization)
  Sender: FDA-Public Use
  Company Number: US-GLAXOSMITHKLINE-A1067699A

PATIENT
  Age: 74 Year
  Sex: Female

DRUGS (11)
  1. LOVAZA [Suspect]
     Indication: BLOOD CHOLESTEROL INCREASED
     Dosage: 2CAP TWICE PER DAY
     Route: 048
     Dates: start: 201401, end: 201401
  2. SIMVASTATIN [Suspect]
     Indication: PRODUCT USED FOR UNKNOWN INDICATION
     Dates: start: 201403
  3. VINEGAR [Concomitant]
  4. CINNAMON BARK [Concomitant]
  5. ATENOLOL [Concomitant]
  6. DIOVAN/HCTZ [Concomitant]
  7. LEVOTHYROXIN [Concomitant]
  8. IRON [Concomitant]
  9. SUPPLEMENT [Concomitant]
  10. ASPIRIN [Concomitant]
  11. B12 [Concomitant]

REACTIONS (5)
  - Feeling abnormal [Recovering/Resolving]
  - Lethargy [Recovering/Resolving]
  - Chest discomfort [Recovering/Resolving]
  - Headache [Recovering/Resolving]
  - Treatment noncompliance [Unknown]
